FAERS Safety Report 18081401 (Version 1)
Quarter: 2020Q3

REPORT INFORMATION
  Report Type: Spontaneous
  Country: US (occurrence: US)
  Receive Date: 20200728
  Receipt Date: 20200728
  Transmission Date: 20201103
  Serious: Yes (Other)
  Sender: FDA-Public Use
  Company Number: US-GILEAD-2020-0485501

PATIENT
  Age: 63 Year
  Sex: Male

DRUGS (32)
  1. AMOXICILLIN. [Concomitant]
     Active Substance: AMOXICILLIN
  2. OMEGA 3 + 6 [Concomitant]
     Active Substance: .ALPHA.-TOCOPHEROL ACETATE, D-\EVENING PRIMROSE OIL\FISH OIL
  3. PHOSPHATASE [Concomitant]
  4. TIVICAY [Concomitant]
     Active Substance: DOLUTEGRAVIR SODIUM
     Indication: HIV INFECTION
  5. DICYCLOMINE HCL [Concomitant]
     Active Substance: DICYCLOMINE HYDROCHLORIDE
  6. FLUDROCORTISONE [Concomitant]
     Active Substance: FLUDROCORTISONE
  7. HYDROCHLOROTHIAZIDE. [Concomitant]
     Active Substance: HYDROCHLOROTHIAZIDE
  8. LIPITOR [Concomitant]
     Active Substance: ATORVASTATIN CALCIUM
  9. METRONIDAZOLE. [Concomitant]
     Active Substance: METRONIDAZOLE
  10. NIFEDIPINE. [Concomitant]
     Active Substance: NIFEDIPINE
  11. POTASSIUM [Concomitant]
     Active Substance: POTASSIUM
  12. ALLOPURINOL. [Concomitant]
     Active Substance: ALLOPURINOL
  13. AMLODIPINE [Concomitant]
     Active Substance: AMLODIPINE BESYLATE
  14. OMEPRAZOLE. [Concomitant]
     Active Substance: OMEPRAZOLE
  15. ISENTRESS [Concomitant]
     Active Substance: RALTEGRAVIR POTASSIUM
     Indication: HIV INFECTION
  16. LANTUS [Concomitant]
     Active Substance: INSULIN GLARGINE
  17. VALCYTE [Concomitant]
     Active Substance: VALGANCICLOVIR HYDROCHLORIDE
  18. VIREAD [Suspect]
     Active Substance: TENOFOVIR DISOPROXIL FUMARATE
     Indication: HIV INFECTION
     Dosage: UNK
     Route: 048
     Dates: start: 2002, end: 2007
  19. NORVIR [Concomitant]
     Active Substance: RITONAVIR
     Indication: HIV INFECTION
  20. GLIPIZIDE. [Concomitant]
     Active Substance: GLIPIZIDE
  21. LISINOPRIL. [Concomitant]
     Active Substance: LISINOPRIL
  22. LOSARTAN. [Concomitant]
     Active Substance: LOSARTAN
  23. MAGNESIUM [Concomitant]
     Active Substance: MAGNESIUM
  24. METFORMIN [Concomitant]
     Active Substance: METFORMIN HYDROCHLORIDE
  25. METOPROLOL. [Concomitant]
     Active Substance: METOPROLOL
  26. TOBRAMYCIN. [Concomitant]
     Active Substance: TOBRAMYCIN
  27. FENOFIBRATE. [Concomitant]
     Active Substance: FENOFIBRATE
  28. TRESIBA [Concomitant]
     Active Substance: INSULIN DEGLUDEC
  29. TRUVADA [Suspect]
     Active Substance: EMTRICITABINE\TENOFOVIR DISOPROXIL FUMARATE
     Indication: HIV INFECTION
     Dosage: UNK
     Route: 048
     Dates: start: 2007, end: 2007
  30. ATORVASTATIN [Concomitant]
     Active Substance: ATORVASTATIN
  31. PRANDIN [Concomitant]
     Active Substance: REPAGLINIDE
  32. PREZISTA [Concomitant]
     Active Substance: DARUNAVIR ETHANOLATE
     Indication: HIV INFECTION

REACTIONS (5)
  - Osteoporosis [Not Recovered/Not Resolved]
  - Pain [Not Recovered/Not Resolved]
  - Nephropathy [Not Recovered/Not Resolved]
  - End stage renal disease [Not Recovered/Not Resolved]
  - Emotional distress [Not Recovered/Not Resolved]

NARRATIVE: CASE EVENT DATE: 2008
